FAERS Safety Report 9404753 (Version 2)
Quarter: 2013Q4

REPORT INFORMATION
  Report Type: Report from Study
  Country: BR (occurrence: BR)
  Receive Date: 20130717
  Receipt Date: 20131009
  Transmission Date: 20140711
  Serious: Yes (Death, Hospitalization)
  Sender: FDA-Public Use
  Company Number: PHHY2013BR075723

PATIENT
  Age: 89 Year
  Sex: Female

DRUGS (2)
  1. DIOVAN HCT [Suspect]
     Indication: HYPERTENSION
     Dosage: 1 DF (320 MG VALS AND 12.5 MG HCTZ), A DAY
     Route: 048
     Dates: end: 20130707
  2. ENABLEX [Suspect]
     Indication: URINARY INCONTINENCE
     Dosage: 1 DF (7.5 MG), A DAY
     Route: 048
     Dates: end: 20130707

REACTIONS (1)
  - Pneumonia [Fatal]
